FAERS Safety Report 9908962 (Version 1)
Quarter: 2014Q1

REPORT INFORMATION
  Report Type: Spontaneous
  Country: PK (occurrence: PK)
  Receive Date: 20140219
  Receipt Date: 20140219
  Transmission Date: 20141002
  Serious: Yes (Other)
  Sender: FDA-Public Use
  Company Number: PK-009507513-1402PAK008560

PATIENT
  Sex: Male

DRUGS (5)
  1. RIBAVIRIN [Suspect]
     Indication: HEPATITIS C
     Dosage: 8 TO 12 WEEKS
     Route: 048
  2. INTERFERON (UNSPECIFIED) [Suspect]
     Indication: HEPATITIS C
     Dosage: 8 TO 12 WEEKS
  3. PREDNISOLONE [Concomitant]
     Indication: IMMUNOSUPPRESSION
  4. AZATHIOPRINE [Concomitant]
     Indication: IMMUNOSUPPRESSION
  5. CYCLOSPORINE [Concomitant]
     Indication: IMMUNOSUPPRESSION

REACTIONS (1)
  - Pancytopenia [Unknown]
